FAERS Safety Report 6426918-6 (Version None)
Quarter: 2009Q4

REPORT INFORMATION
  Report Type: 
  Country: None (occurrence: None)
  Receive Date: 20091104
  Receipt Date: 20090716
  Transmission Date: 20100525
  Serious: No
  Sender: FDA-Public Use
  Company Number: US-BAYER-200916179BCC

PATIENT
  Age: 11 Year
  Sex: Female

DRUGS (2)
  1. ALEVE [Suspect]
     Indication: HEADACHE
     Dosage: MOTHER BROKE THE TABLET IN HALF AND GAVE IT TO HER DAUGHTER
     Route: 048
     Dates: start: 20090715
  2. CHILDREN'S NYQUIL [Concomitant]
     Route: 065

REACTIONS (1)
  - NO ADVERSE EVENT [None]
